FAERS Safety Report 10628210 (Version 1)
Quarter: 2014Q4

REPORT INFORMATION
  Report Type: Spontaneous
  Country: US (occurrence: US)
  Receive Date: 20141205
  Receipt Date: 20141205
  Transmission Date: 20150529
  Serious: No
  Sender: FDA-Public Use
  Company Number: US-BRISTOL-MYERS SQUIBB COMPANY-20208377

PATIENT
  Sex: Female

DRUGS (1)
  1. AZACTAM [Suspect]
     Active Substance: AZTREONAM

REACTIONS (5)
  - Diarrhoea [Unknown]
  - Nausea [Unknown]
  - Visual impairment [Unknown]
  - Pyrexia [Unknown]
  - Dyspnoea [Unknown]
